FAERS Safety Report 22679373 (Version 7)
Quarter: 2024Q1

REPORT INFORMATION
  Report Type: Spontaneous
  Country: CA (occurrence: CA)
  Receive Date: 20230707
  Receipt Date: 20240321
  Transmission Date: 20240410
  Serious: Yes (Other)
  Sender: FDA-Public Use
  Company Number: CA-CELLTRION INC.-2023CA010959

PATIENT

DRUGS (7)
  1. INFLECTRA [Suspect]
     Active Substance: INFLIXIMAB-DYYB
     Indication: Colitis ulcerative
     Dosage: 5 MG/KG, W 0, 2, 6 THEN EVERY 8 WEEKS
     Route: 042
     Dates: start: 20230518
  2. INFLECTRA [Suspect]
     Active Substance: INFLIXIMAB-DYYB
     Dosage: 5 MG/KG, W 0, 2, 6 THEN EVERY 8 WEEKS
     Route: 042
     Dates: start: 20231026
  3. INFLECTRA [Suspect]
     Active Substance: INFLIXIMAB-DYYB
     Dosage: 5 MG/KG (351 MG), EVERY 6 WEEKS
     Route: 042
     Dates: start: 20231208
  4. INFLECTRA [Suspect]
     Active Substance: INFLIXIMAB-DYYB
     Dosage: 5 MG/KG , EVERY 6 WEEKS (345.5 MG CALCULATED 7 WEEKS AND 3 DAYS)
     Route: 042
     Dates: start: 20240129
  5. INFLECTRA [Suspect]
     Active Substance: INFLIXIMAB-DYYB
     Dosage: 5 MG/KG EVERY 6 WEEKS (359.5 MG, AFTER 6 WEEKS 2 DAYS)
     Route: 042
     Dates: start: 20240313
  6. PREDNISONE [Concomitant]
     Active Substance: PREDNISONE
     Dosage: UNK
  7. ZOLOFT [Concomitant]
     Active Substance: SERTRALINE HYDROCHLORIDE
     Dosage: UNK

REACTIONS (11)
  - Condition aggravated [Not Recovered/Not Resolved]
  - Headache [Unknown]
  - COVID-19 [Recovered/Resolved]
  - Influenza [Recovering/Resolving]
  - Respiratory syncytial virus infection [Recovering/Resolving]
  - Pyrexia [Recovered/Resolved]
  - Pain [Recovered/Resolved]
  - Chills [Recovering/Resolving]
  - Cough [Recovering/Resolving]
  - Throat irritation [Not Recovered/Not Resolved]
  - Off label use [Unknown]

NARRATIVE: CASE EVENT DATE: 20230101
